FAERS Safety Report 4804485-8 (Version None)
Quarter: 2005Q4

REPORT INFORMATION
  Report Type: 
  Country: None (occurrence: None)
  Receive Date: 20051017
  Receipt Date: 20050914
  Transmission Date: 20060501
  Serious: Yes (Hospitalization)
  Sender: FDA-Public Use
  Company Number: 2005RR-00859

PATIENT
  Age: 76 Year
  Sex: Male

DRUGS (5)
  1. ASPIRIN [Suspect]
     Indication: PROPHYLAXIS
     Dosage: 75 MG, ORAL
     Route: 048
     Dates: start: 19990101
  2. WAFARIN (WARFARIN) [Suspect]
     Indication: HEART VALVE REPLACEMENT
     Dosage: 6 MG, ORAL
     Route: 048
     Dates: start: 19970101
  3. LISINOPRIL TABLET 10 MG (LISINOPRIL) [Concomitant]
  4. ATORVASTATIN [Concomitant]
  5. PANTOPRAZOLE [Concomitant]

REACTIONS (8)
  - ABDOMINAL PAIN [None]
  - ASTHENIA [None]
  - DUODENAL ULCER [None]
  - DYSPNOEA [None]
  - HAEMOGLOBIN DECREASED [None]
  - INTERNATIONAL NORMALISED RATIO INCREASED [None]
  - MALAISE [None]
  - MELAENA [None]
